FAERS Safety Report 5742371-X (Version None)
Quarter: 2008Q2

REPORT INFORMATION
  Report Type: 
  Country: None (occurrence: None)
  Receive Date: 20080519
  Receipt Date: 20080513
  Transmission Date: 20081010
  Serious: Yes (Death, Other)
  Sender: FDA-Public Use
  Company Number: JP-ABBOTT-07P-087-0422748-00

PATIENT
  Age: 76 Year
  Sex: Female

DRUGS (12)
  1. KLARICID [Suspect]
     Indication: DRUG USE FOR UNKNOWN INDICATION
     Dates: end: 20070515
  2. CLARITHROMYCIN [Suspect]
     Indication: CHRONIC SINUSITIS
     Route: 048
     Dates: start: 20070516, end: 20070531
  3. CLARITHROMYCIN [Suspect]
     Route: 048
     Dates: end: 20070515
  4. BIFIDOBACTERIUM [Concomitant]
     Indication: DRUG USE FOR UNKNOWN INDICATION
     Route: 048
  5. LEVODOPA / CARBIDOPA HYDRATE [Concomitant]
     Indication: PARKINSON'S DISEASE
     Route: 048
  6. PERGOLIDE MESYLATE [Concomitant]
     Indication: PARKINSON'S DISEASE
     Route: 048
  7. AMANTADINE HCL [Concomitant]
     Indication: PARKINSON'S DISEASE
     Route: 048
  8. URSODIOL [Concomitant]
     Indication: DRUG USE FOR UNKNOWN INDICATION
     Route: 048
  9. MOSAPRIDE CITRATE [Concomitant]
     Indication: REFLUX OESOPHAGITIS
     Route: 048
  10. BROTIZOLAM [Concomitant]
     Indication: INSOMNIA
     Route: 048
  11. LANSOPRAZOLE [Concomitant]
     Indication: REFLUX OESOPHAGITIS
     Route: 048
     Dates: end: 20070524
  12. FAMOTIDINE [Concomitant]
     Indication: REFLUX OESOPHAGITIS
     Route: 048
     Dates: start: 20070524

REACTIONS (3)
  - DEPRESSED LEVEL OF CONSCIOUSNESS [None]
  - PSEUDOMEMBRANOUS COLITIS [None]
  - SEPSIS [None]
